FAERS Safety Report 7049162-0 (Version None)
Quarter: 2010Q4

REPORT INFORMATION
  Report Type: 
  Country: None (occurrence: None)
  Receive Date: 20101018
  Receipt Date: 20101005
  Transmission Date: 20110411
  Serious: Yes (Other)
  Sender: FDA-Public Use
  Company Number: PHHY2010US66482

PATIENT
  Sex: Female
  Weight: 91.61 kg

DRUGS (1)
  1. ZOMETA [Suspect]
     Indication: MULTIPLE MYELOMA
     Dosage: 3 MG
     Route: 042
     Dates: start: 20080319, end: 20100831

REACTIONS (1)
  - OSTEONECROSIS OF JAW [None]
